FAERS Safety Report 9276973 (Version 2)
Quarter: 2013Q2

REPORT INFORMATION
  Report Type: Spontaneous
  Country: FR (occurrence: FR)
  Receive Date: 20130507
  Receipt Date: 20130604
  Transmission Date: 20140414
  Serious: Yes (Hospitalization, Other)
  Sender: FDA-Public Use
  Company Number: FR-PFIZER INC-2013139482

PATIENT
  Age: 85 Year
  Sex: Female

DRUGS (6)
  1. LYRICA [Suspect]
     Dosage: 300 MG, 2X/DAY
     Route: 048
  2. ANAFRANIL [Suspect]
     Dosage: 75 MG, 1X/DAY
     Route: 048
  3. ANAFRANIL [Suspect]
     Dosage: 25 MG, 1X/DAY
     Route: 048
  4. TRIATEC [Concomitant]
     Dosage: 2.5 MG, 2X/DAY
  5. LEVOTHYROX [Concomitant]
     Dosage: 100 UG, 1X/DAY
  6. MOPRAL [Concomitant]
     Dosage: 10 MG, UNK

REACTIONS (9)
  - Hypokalaemia [Recovered/Resolved]
  - Hypotonia [Unknown]
  - Confusional state [Unknown]
  - Memory impairment [Unknown]
  - Speech disorder [Unknown]
  - Toxicity to various agents [Unknown]
  - Cerebrovascular accident [Unknown]
  - Dehydration [Unknown]
  - Renal failure [Unknown]
